FAERS Safety Report 11130108 (Version 1)
Quarter: 2015Q2

REPORT INFORMATION
  Report Type: Report from Study
  Country: GB (occurrence: GB)
  Receive Date: 20150521
  Receipt Date: 20150521
  Transmission Date: 20150821
  Serious: Yes (Hospitalization)
  Sender: FDA-Public Use
  Company Number: GB-AMGEN-GBRNI2015048338

PATIENT
  Age: 76 Year
  Sex: Male
  Weight: 83 kg

DRUGS (1)
  1. ETANERCEPT [Suspect]
     Active Substance: ETANERCEPT
     Indication: RHEUMATOID ARTHRITIS
     Dosage: 25 MG, 2 TIMES/WK
     Route: 065
     Dates: start: 20040815

REACTIONS (1)
  - Pulmonary fibrosis [Unknown]

NARRATIVE: CASE EVENT DATE: 20090723
